FAERS Safety Report 9540317 (Version 1)
Quarter: 2013Q3

REPORT INFORMATION
  Report Type: Spontaneous
  Country: US (occurrence: US)
  Receive Date: 20130920
  Receipt Date: 20130920
  Transmission Date: 20140515
  Serious: No
  Sender: FDA-Public Use
  Company Number: US-TARO-2013P1011916

PATIENT
  Sex: Male

DRUGS (1)
  1. CLOTRIMAZOLE/BETAMETHASONE DIPROPIONATE [Suspect]
     Route: 001
     Dates: start: 20130708

REACTIONS (2)
  - Deafness unilateral [Not Recovered/Not Resolved]
  - Off label use [Not Recovered/Not Resolved]
